FAERS Safety Report 10146623 (Version 2)
Quarter: 2015Q1

REPORT INFORMATION
  Report Type: Report from Study
  Country: US (occurrence: US)
  Receive Date: 20140501
  Receipt Date: 20150206
  Transmission Date: 20150720
  Serious: Yes (Other)
  Sender: FDA-Public Use
  Company Number: US-SA-2014SA053774

PATIENT
  Age: 47 Year
  Sex: Male

DRUGS (1)
  1. AUBAGIO [Suspect]
     Active Substance: TERIFLUNOMIDE
     Indication: MULTIPLE SCLEROSIS
     Route: 048
     Dates: start: 20130722

REACTIONS (3)
  - Skin cancer [Not Recovered/Not Resolved]
  - Rash [Not Recovered/Not Resolved]
  - Impaired healing [Unknown]
